FAERS Safety Report 10156719 (Version 1)
Quarter: 2014Q2

REPORT INFORMATION
  Report Type: Spontaneous
  Country: US (occurrence: US)
  Receive Date: 20140507
  Receipt Date: 20140507
  Transmission Date: 20141212
  Serious: Yes (Other)
  Sender: FDA-Public Use
  Company Number: US-JNJFOC-20140500553

PATIENT
  Age: 13 Year
  Sex: Female

DRUGS (4)
  1. REMICADE [Suspect]
     Indication: CROHN^S DISEASE
     Route: 042
  2. PENTASA [Concomitant]
     Route: 065
  3. IRON [Concomitant]
     Route: 065
  4. B 12 [Concomitant]
     Route: 065

REACTIONS (1)
  - VIIth nerve paralysis [Unknown]
